FAERS Safety Report 9689529 (Version 2)
Quarter: 2013Q4

REPORT INFORMATION
  Report Type: Spontaneous
  Country: US (occurrence: US)
  Receive Date: 20131115
  Receipt Date: 20131115
  Transmission Date: 20140711
  Serious: Yes (Hospitalization, Disabling, Other)
  Sender: FDA-Public Use
  Company Number: 2013SP007574

PATIENT
  Age: 35 Year
  Sex: Female
  Weight: 72.6 kg

DRUGS (102)
  1. FLUCONAZOLE [Suspect]
     Indication: PRODUCT USED FOR UNKNOWN INDICATION
  2. FLUCONAZOLE [Suspect]
     Indication: PRODUCT USED FOR UNKNOWN INDICATION
  3. AMOXICILLIN [Suspect]
     Indication: PRODUCT USED FOR UNKNOWN INDICATION
  4. CLAVULANATE POTASSIUM [Suspect]
  5. DEXAMETHASONE SODIUM PHOSPHATE [Suspect]
     Indication: PRODUCT USED FOR UNKNOWN INDICATION
  6. ATENOLOL [Suspect]
     Indication: HYPERTENSION
     Route: 048
  7. DEXAMETHASONE PHOSPHATE [Suspect]
  8. FLUOXETINE [Suspect]
     Indication: PRODUCT USED FOR UNKNOWN INDICATION
  9. QUININE SULFATE [Suspect]
     Indication: PRODUCT USED FOR UNKNOWN INDICATION
  10. MELOXICAM [Suspect]
     Indication: PRODUCT USED FOR UNKNOWN INDICATION
  11. BISOPROLOL [Suspect]
     Indication: HYPERTENSION
  12. OMEPRAZOLE [Suspect]
     Indication: PRODUCT USED FOR UNKNOWN INDICATION
     Route: 048
  13. ALPRAZOLAM [Suspect]
     Indication: PRODUCT USED FOR UNKNOWN INDICATION
     Dates: start: 1985
  14. CETIRIZINE HYDROCHLORIDE [Suspect]
     Indication: MULTIPLE ALLERGIES
     Dates: start: 2003
  15. CETIRIZINE HYDROCHLORIDE [Suspect]
     Indication: HYPERSENSITIVITY
     Dates: start: 2003
  16. OLMESARTAN MEDOXOMIL [Suspect]
     Indication: HYPERTENSION
  17. LATANOPROST [Suspect]
     Indication: GLAUCOMA
     Dates: start: 2000
  18. VERAPAMIL HYDROCHLORIDE [Suspect]
     Indication: HYPERTENSION
  19. DIAZEPAM [Suspect]
     Indication: PRODUCT USED FOR UNKNOWN INDICATION
  20. CELECOXIB [Suspect]
     Indication: ARTHRITIS
  21. METAXALONE [Suspect]
     Indication: PRODUCT USED FOR UNKNOWN INDICATION
  22. TRIAZOLAM [Suspect]
     Indication: PRODUCT USED FOR UNKNOWN INDICATION
  23. COVERA [Suspect]
     Indication: HYPERTENSION
  24. LOMOTIL [Suspect]
     Indication: PRODUCT USED FOR UNKNOWN INDICATION
  25. ESOMEPRAZOLE [Suspect]
     Indication: PRODUCT USED FOR UNKNOWN INDICATION
  26. TRIAMCINOLONE [Suspect]
     Indication: PRODUCT USED FOR UNKNOWN INDICATION
     Route: 030
  27. BISOPROLOL FUMARATE [Suspect]
     Indication: PRODUCT USED FOR UNKNOWN INDICATION
  28. BUPROPION HYDROCHLORIDE [Suspect]
     Indication: PRODUCT USED FOR UNKNOWN INDICATION
  29. CETIRIZINE [Suspect]
     Indication: HYPERSENSITIVITY
  30. CETIRIZINE [Suspect]
     Indication: MULTIPLE ALLERGIES
  31. FLUTICASONE [Suspect]
     Indication: PRODUCT USED FOR UNKNOWN INDICATION
  32. CARISOPRODOL [Suspect]
     Indication: PRODUCT USED FOR UNKNOWN INDICATION
  33. CLOTRIMAZOLE [Suspect]
     Indication: PRODUCT USED FOR UNKNOWN INDICATION
  34. CLONAZEPAM [Suspect]
     Indication: MUSCLE SPASMS
  35. TRAZODONE HYDROCHLORIDE [Suspect]
     Indication: PRODUCT USED FOR UNKNOWN INDICATION
  36. OLMESARTAN [Suspect]
     Indication: HYPERTENSION
  37. MOMETASONE FUROATE [Suspect]
     Indication: PRODUCT USED FOR UNKNOWN INDICATION
  38. CANDESARTAN CILEXETIL [Suspect]
     Indication: PRODUCT USED FOR UNKNOWN INDICATION
     Route: 048
  39. RIZATRIPTAN BENZOATE [Suspect]
     Indication: PRODUCT USED FOR UNKNOWN INDICATION
  40. KETOCONAZOLE [Suspect]
     Indication: PRODUCT USED FOR UNKNOWN INDICATION
  41. TRAMADOL [Suspect]
     Indication: PRODUCT USED FOR UNKNOWN INDICATION
  42. PETHIDINE HYDROCHLORIDE [Suspect]
     Indication: PRODUCT USED FOR UNKNOWN INDICATION
  43. BACTRIM [Suspect]
     Indication: PRODUCT USED FOR UNKNOWN INDICATION
  44. MOXIFLOXACIN HYDROCHLORIDE [Suspect]
     Indication: PRODUCT USED FOR UNKNOWN INDICATION
  45. FUROSEMIDE [Suspect]
     Indication: HYPERTENSION
  46. LOSARTAN POTASSIUM [Suspect]
     Indication: HYPERTENSION
     Dates: start: 2002
  47. TRAZODONE HYDROCHLORIDE [Suspect]
  48. CLONAZEPAM [Suspect]
     Indication: MUSCLE SPASMS
  49. ERYTHROMYCIN [Suspect]
  50. CEFAZOLIN [Suspect]
     Route: 048
  51. TRIAZOLAM [Suspect]
  52. ARTHROTEC [Suspect]
  53. CELEBREX [Suspect]
     Indication: PAIN
  54. METOPROLOL [Suspect]
     Indication: HYPERTENSION
     Route: 048
  55. LISINOPRIL [Suspect]
     Indication: HYPERTENSION
     Route: 048
  56. AMLODIPINE [Suspect]
     Indication: HYPERTENSION
  57. CARISOPRODOL [Suspect]
     Route: 048
  58. CLOTRIMAZOLE [Suspect]
  59. VICODIN [Suspect]
  60. ALLEGRA-D [Suspect]
  61. MOMETASONE FUROATE [Suspect]
  62. CANDESARTAN CILEXETIL [Suspect]
  63. LANSOPRAZOLE [Suspect]
  64. LOTRISONE [Suspect]
  65. ESOMEPRAZOLE [Suspect]
  66. RIZATRIPTAN BENZOATE [Suspect]
  67. KETOCONAZOLE [Suspect]
  68. SINEMET [Suspect]
  69. TRAMADOL HYDROCHLORIDE [Suspect]
  70. METAXALONE [Suspect]
     Indication: MUSCLE SPASMS
  71. BACTRIM DS [Suspect]
  72. PROLEX DH /01539501/ [Suspect]
  73. MEPERGAN [Suspect]
  74. PERCOCET /00867901/ [Suspect]
  75. SERETIDE [Suspect]
  76. CODICLEAR DH SYRUP [Suspect]
  77. QUININE [Suspect]
  78. MOXIFLOXACIN HYDROCHLORIDE [Suspect]
  79. ROFECOXIB [Suspect]
  80. DURATUSS /00920201/ [Suspect]
  81. LORTAB /01744401/ [Suspect]
  82. CEFALEXIN [Suspect]
  83. MUPIROCIN [Suspect]
     Route: 061
  84. OSELTAMIVIR PHOSPHATE [Suspect]
  85. FLUOXETINE HYDROCHLORIDE [Suspect]
  86. BUPROPION HYDROCHLORIDE [Suspect]
  87. TRIAMCINOLONE [Suspect]
  88. ENDAL-HD [Suspect]
  89. TRIAMCINOLONE ACETONIDE [Concomitant]
  90. OMEPRAZOLE [Concomitant]
  91. AMOXI-CLAVULANICO [Concomitant]
  92. GUAIFENESIN [Concomitant]
  93. FLUTICASONE PROPIONATE [Concomitant]
  94. MESCOLOR [Concomitant]
  95. BUPROPION HYDROCHLORIDE [Concomitant]
  96. VICODIN [Concomitant]
  97. ECONAZOLE NITRATE [Concomitant]
  98. SUCRALFATE [Concomitant]
  99. BISOPROLOL [Concomitant]
  100. LOMOTIL [Concomitant]
  101. MELOXICAM [Concomitant]
  102. DIAZEPAM [Concomitant]

REACTIONS (34)
  - Osteoarthritis [Not Recovered/Not Resolved]
  - Arthritis [Not Recovered/Not Resolved]
  - Resorption bone increased [Not Recovered/Not Resolved]
  - Bone loss [Not Recovered/Not Resolved]
  - Tarsal tunnel syndrome [Not Recovered/Not Resolved]
  - Activities of daily living impaired [Not Recovered/Not Resolved]
  - Glaucoma [Not Recovered/Not Resolved]
  - Deep vein thrombosis [Not Recovered/Not Resolved]
  - Cholelithiasis [Not Recovered/Not Resolved]
  - Abdominal pain upper [Not Recovered/Not Resolved]
  - Vestibular disorder [Not Recovered/Not Resolved]
  - Vertigo positional [Not Recovered/Not Resolved]
  - Dizziness [Not Recovered/Not Resolved]
  - Neuropathy peripheral [Not Recovered/Not Resolved]
  - Pain in extremity [Not Recovered/Not Resolved]
  - Purpura senile [Not Recovered/Not Resolved]
  - Thrombophlebitis superficial [Not Recovered/Not Resolved]
  - Phlebitis [Not Recovered/Not Resolved]
  - Arthropod bite [Not Recovered/Not Resolved]
  - Vasculitis [Not Recovered/Not Resolved]
  - Bronchitis [Not Recovered/Not Resolved]
  - Bronchospasm [Not Recovered/Not Resolved]
  - Cough [Not Recovered/Not Resolved]
  - Feeling abnormal [Not Recovered/Not Resolved]
  - Renal failure [Not Recovered/Not Resolved]
  - Blood creatinine increased [Not Recovered/Not Resolved]
  - Hypertension [Not Recovered/Not Resolved]
  - Drug interaction [Not Recovered/Not Resolved]
  - Aspartate aminotransferase increased [Not Recovered/Not Resolved]
  - Alanine aminotransferase increased [Not Recovered/Not Resolved]
  - Blood sodium decreased [Not Recovered/Not Resolved]
  - Blood chloride increased [Not Recovered/Not Resolved]
  - Blood alkaline phosphatase increased [Not Recovered/Not Resolved]
  - Blood cholesterol increased [Not Recovered/Not Resolved]
